FAERS Safety Report 21106581 (Version 1)
Quarter: 2022Q3

REPORT INFORMATION
  Report Type: Spontaneous
  Country: US (occurrence: None)
  Receive Date: 20220720
  Receipt Date: 20220720
  Transmission Date: 20221027
  Serious: Yes (Death)
  Sender: FDA-Public Use
  Company Number: None

PATIENT
  Sex: Male
  Weight: 104.6 kg

DRUGS (3)
  1. CARBOPLATIN [Suspect]
     Active Substance: CARBOPLATIN
  2. PEMBROLIZUMAB [Concomitant]
     Active Substance: PEMBROLIZUMAB
  3. ALIMTA [Concomitant]
     Active Substance: PEMETREXED DISODIUM

REACTIONS (11)
  - Urinary tract infection [None]
  - Blood pressure decreased [None]
  - Device related infection [None]
  - Device leakage [None]
  - Bundle branch block right [None]
  - Electrocardiogram T wave abnormal [None]
  - Electrocardiogram abnormal [None]
  - Asthenia [None]
  - Pancytopenia [None]
  - Unresponsive to stimuli [None]
  - Ischaemia [None]

NARRATIVE: CASE EVENT DATE: 20220713
